FAERS Safety Report 9337028 (Version 1)
Quarter: 2013Q2

REPORT INFORMATION
  Report Type: Spontaneous
  Country: US (occurrence: US)
  Receive Date: 20130607
  Receipt Date: 20130607
  Transmission Date: 20140414
  Serious: Yes (Hospitalization, Other)
  Sender: FDA-Public Use
  Company Number: US-ROCHE-1231322

PATIENT
  Age: 61 Year
  Sex: Female
  Weight: 78.09 kg

DRUGS (5)
  1. KLONOPIN [Suspect]
     Indication: EPILEPSY
     Dosage: AT NIGHT
     Route: 065
  2. KLONOPIN [Suspect]
     Dosage: IN MORNING
     Route: 065
  3. DILANTIN [Concomitant]
     Indication: EPILEPSY
     Route: 065
  4. DILANTIN [Concomitant]
     Route: 065
  5. NEURONTIN (UNITED STATES) [Concomitant]

REACTIONS (8)
  - Convulsion [Not Recovered/Not Resolved]
  - Bronchitis [Unknown]
  - Ear infection [Unknown]
  - Brain operation [Unknown]
  - Headache [Unknown]
  - Pain [Unknown]
  - Vision blurred [Unknown]
  - Drug ineffective [Unknown]
